FAERS Safety Report 10085690 (Version 1)
Quarter: 2014Q2

REPORT INFORMATION
  Report Type: Spontaneous
  Country: US (occurrence: None)
  Receive Date: 20140416
  Receipt Date: 20140416
  Transmission Date: 20141212
  Serious: Yes (Other)
  Sender: FDA-Public Use
  Company Number: 201401028

PATIENT
  Sex: Male

DRUGS (1)
  1. TESTOPEL [Suspect]
     Indication: BLOOD TESTOSTERONE DECREASED
     Dosage: 10 PELLETS, SUBCUTANEOUS
     Route: 058
     Dates: start: 2013

REACTIONS (6)
  - Implant site swelling [None]
  - Implant site pain [None]
  - Implant site induration [None]
  - Implant site haemorrhage [None]
  - Device extrusion [None]
  - Implant site infection [None]
